FAERS Safety Report 9727187 (Version 1)
Quarter: 2013Q4

REPORT INFORMATION
  Report Type: Spontaneous
  Country: US (occurrence: US)
  Receive Date: 20131203
  Receipt Date: 20131203
  Transmission Date: 20140711
  Serious: No
  Sender: FDA-Public Use
  Company Number: US-BRISTOL-MYERS SQUIBB COMPANY-19537562

PATIENT
  Age: 65 Year
  Sex: Female
  Weight: 86.17 kg

DRUGS (17)
  1. KOMBIGLYZE XR [Suspect]
     Dosage: 1 DF : 2.5/1000MG ?TABLET?LAST DOSE : 27AUG13
     Dates: start: 2012
  2. CRESTOR [Concomitant]
  3. CARVEDILOL [Concomitant]
  4. TRIAMTERENE + HCTZ [Concomitant]
     Dosage: 1 DF : 75/50MG
  5. PANTOPRAZOLE [Concomitant]
  6. CELEBREX [Concomitant]
  7. PLAVIX [Concomitant]
  8. CYMBALTA [Concomitant]
     Dosage: CAPSULE
  9. GABAPENTIN [Concomitant]
  10. ALLEGRA [Concomitant]
  11. ASPIRIN [Concomitant]
  12. TRAMADOL [Concomitant]
  13. VOLTAREN [Concomitant]
     Dosage: GEL
  14. BETAMETHASONE [Concomitant]
  15. VITAMIN D [Concomitant]
  16. VITAMIN D3 [Concomitant]
  17. HYOSCYAMINE [Concomitant]
     Indication: ABDOMINAL PAIN
     Dosage: SL Q6H PRN

REACTIONS (2)
  - Chest pain [Unknown]
  - Abdominal pain [Unknown]
